FAERS Safety Report 11683533 (Version 3)
Quarter: 2016Q3

REPORT INFORMATION
  Report Type: Spontaneous
  Country: AU (occurrence: AU)
  Receive Date: 20151029
  Receipt Date: 20160725
  Transmission Date: 20161109
  Serious: Yes (Other)
  Sender: FDA-Public Use
  Company Number: AU-BAXALTA-2015BLT002400

PATIENT
  Age: 2 Year
  Sex: Female

DRUGS (1)
  1. KIOVIG [Suspect]
     Active Substance: HUMAN IMMUNOGLOBULIN G
     Indication: KAWASAKI^S DISEASE
     Dosage: 30 G, UNK
     Route: 042
     Dates: start: 20151021, end: 20151021

REACTIONS (3)
  - Body temperature increased [Recovered/Resolved]
  - Chills [Recovered/Resolved]
  - Hypertension [Recovered/Resolved]

NARRATIVE: CASE EVENT DATE: 20151021
